FAERS Safety Report 7989204-9 (Version None)
Quarter: 2011Q4

REPORT INFORMATION
  Report Type: 
  Country: None (occurrence: None)
  Receive Date: 20111007
  Receipt Date: 20110824
  Transmission Date: 20120403
  Serious: No
  Sender: FDA-Public Use
  Company Number: 2011HGS-002407

PATIENT
  Age: 47 Year
  Sex: Female
  Weight: 53.0709 kg

DRUGS (31)
  1. BENLYSTA [Suspect]
     Indication: SYSTEMIC LUPUS ERYTHEMATOSUS
     Dosage: 10 MG/KG, 1 IN 2 WK, INTRAVENOUS DRIP
     Route: 041
     Dates: start: 20110714, end: 20110714
  2. PROMETRIUM (PROGESTERONE) (PROGESTERONE) [Concomitant]
  3. IBUPROFEN [Concomitant]
  4. LISINOPRIL [Concomitant]
  5. ACIDOPHILUS (LACTOBACILLUS ACIDOPHILUS) (LACTOBACILLUS ACIDOPHILUS) [Concomitant]
  6. FOLIC ACID [Concomitant]
  7. GLUCOSAMINE (GLUCOSAMINE) (GLUCOSAMINE) [Concomitant]
  8. ACYCLOVIR (ACICLOVIR) (ACICLOVIR) [Concomitant]
  9. PREDNISONE [Concomitant]
  10. NEXIUM [Concomitant]
  11. ANTIDEPRESSANTS (ANTIDEPRESSANTS) (DULOXETINE) [Concomitant]
  12. METRONIDAZOLE [Concomitant]
  13. ZOFRAN ODT (ONDANSETRON) (ONDANSETRON) [Concomitant]
  14. AMBIEN [Concomitant]
  15. HYDROCHLOROTHIAZIDE [Concomitant]
  16. NEBIVOLOL (NEBIVOLOL) (NEBIVOLOL) [Concomitant]
  17. DILAUDID (HYDROMORPHONE HYDROCHLORIDE) (HYDROMORPHONE HYDROCHLORIDE) [Concomitant]
  18. PROMETHAZINE (PROMETHAZINE) (PROMETHAZINE) [Concomitant]
  19. FINACEA (AZELAIC ACID) (AZELAIC ACID) [Concomitant]
  20. FENTANYL [Concomitant]
  21. LORAZEPAM [Concomitant]
  22. MELATONIN (MELATONIN) (MELATONIN) [Concomitant]
  23. FLUCONAZOLE [Concomitant]
  24. TRAZODONE (TRAZODONE) (TRAZODONE) [Concomitant]
  25. NYSTATIN (NYSTATIN) (NYSTATIN) [Concomitant]
  26. ALBUTEROL (SALBUTAMOL) (SALBUTAMOL) [Concomitant]
  27. HYDROXYCHLOROQUINE (HYDROXYCHLOROQUINE) (HYDROXYCHLOROQUINE) [Concomitant]
  28. SONATA (ZALEPLON) (ZALEPLON) [Concomitant]
  29. LIDODERM (LIDOCAINE) (LIDOCAINE) [Concomitant]
  30. CLONIDINE [Concomitant]
  31. MACRODANTIN (NITROFURANTOIN) (NITROFURANTOIN) [Concomitant]

REACTIONS (2)
  - CONSTIPATION [None]
  - DIARRHOEA [None]
